FAERS Safety Report 4305153-1 (Version None)
Quarter: 2004Q1

REPORT INFORMATION
  Report Type: 
  Country: None (occurrence: None)
  Receive Date: 20040225
  Receipt Date: 20040225
  Transmission Date: 20041129
  Serious: Yes (Other)
  Sender: FDA-Public Use
  Company Number: None

PATIENT
  Sex: Male

DRUGS (11)
  1. ALEMTUZUMAB [Suspect]
     Indication: CHRONIC LYMPHOCYTIC LEUKAEMIA
     Dates: start: 20031112, end: 20031116
  2. ALEMTUZUMAB [Suspect]
     Indication: NODAL MARGINAL ZONE B-CELL LYMPHOMA STAGE I
     Dates: start: 20031112, end: 20031116
  3. APAP TAB [Concomitant]
  4. ALLOPURINOL [Concomitant]
  5. DOCUSATE [Concomitant]
  6. FLUDARABINE PHOSPHATE [Concomitant]
  7. LANSOPRAZOLE [Concomitant]
  8. MEPERIDINE HCL [Concomitant]
  9. KCL TAB [Concomitant]
  10. COTRIMOXAZOLE [Concomitant]
  11. ONDANSETRON HCL [Concomitant]

REACTIONS (2)
  - RASH ERYTHEMATOUS [None]
  - URTICARIA [None]
